FAERS Safety Report 11967636 (Version 1)
Quarter: 2016Q1

REPORT INFORMATION
  Report Type: Spontaneous
  Country: US (occurrence: US)
  Receive Date: 20160127
  Receipt Date: 20160127
  Transmission Date: 20160526
  Serious: Yes (Disabling)
  Sender: FDA-Public Use
  Company Number: US-ASTRAZENECA-2016SE07424

PATIENT
  Age: 53 Year
  Sex: Male
  Weight: 127 kg

DRUGS (15)
  1. NEXIUM [Suspect]
     Active Substance: ESOMEPRAZOLE MAGNESIUM
     Indication: GASTROOESOPHAGEAL REFLUX DISEASE
     Route: 048
     Dates: start: 2001, end: 2014
  2. RAMIPRIL. [Concomitant]
     Active Substance: RAMIPRIL
     Indication: DIABETES MELLITUS
     Route: 048
  3. RAMIPRIL. [Concomitant]
     Active Substance: RAMIPRIL
     Indication: CARDIAC DISORDER
     Route: 048
  4. NEXIUM [Suspect]
     Active Substance: ESOMEPRAZOLE MAGNESIUM
     Indication: GASTROOESOPHAGEAL REFLUX DISEASE
     Route: 048
     Dates: start: 2015
  5. CYCLOBENZAPRINE [Concomitant]
     Active Substance: CYCLOBENZAPRINE
     Indication: ARTHRITIS
     Route: 048
  6. METFORMIN [Concomitant]
     Active Substance: METFORMIN HYDROCHLORIDE
     Indication: DIABETES MELLITUS
     Route: 048
  7. RIZATRIPTAN. [Concomitant]
     Active Substance: RIZATRIPTAN
     Indication: MIGRAINE
     Dosage: AS NEEDED TO TAKE ONE DOSE WHEN A MIGRAINE STARTS, THEN HE CAN TAKE ANOTHER 2 HOURS LATER IF NEEDED
     Route: 048
  8. LABETALOL [Concomitant]
     Active Substance: LABETALOL\LABETALOL HYDROCHLORIDE
     Indication: HYPERTENSION
     Route: 048
  9. FENOFIBRATE. [Concomitant]
     Active Substance: FENOFIBRATE
     Indication: BLOOD CHOLESTEROL ABNORMAL
     Route: 048
  10. DIAZEPAM. [Concomitant]
     Active Substance: DIAZEPAM
     Indication: MUSCLE SPASMS
     Dosage: 5 MG, TWICE DAILY AS NEEDED
     Route: 048
  11. OMEPRAZOLE. [Suspect]
     Active Substance: OMEPRAZOLE
     Indication: ILL-DEFINED DISORDER
     Route: 048
     Dates: start: 2014, end: 2015
  12. LABETALOL [Concomitant]
     Active Substance: LABETALOL\LABETALOL HYDROCHLORIDE
     Indication: CARDIAC DISORDER
     Route: 048
  13. NEXIUM [Suspect]
     Active Substance: ESOMEPRAZOLE MAGNESIUM
     Indication: LAPAROSCOPIC SURGERY
     Route: 048
     Dates: start: 2001, end: 2014
  14. NEXIUM [Suspect]
     Active Substance: ESOMEPRAZOLE MAGNESIUM
     Indication: LAPAROSCOPIC SURGERY
     Route: 048
     Dates: start: 2015
  15. HYDROCODONE [Concomitant]
     Active Substance: HYDROCODONE
     Indication: PAIN
     Dosage: 5/325 MG EVERY 8 HOURS AS NEEDED
     Route: 048

REACTIONS (8)
  - Vomiting [Recovered/Resolved]
  - Activities of daily living impaired [Recovered/Resolved]
  - Off label use [Unknown]
  - Arthritis [Unknown]
  - Regurgitation [Recovered/Resolved]
  - Malaise [Recovered/Resolved]
  - Product use issue [Unknown]
  - Drug ineffective [Unknown]

NARRATIVE: CASE EVENT DATE: 2001
